FAERS Safety Report 9369860 (Version 1)
Quarter: 2013Q2

REPORT INFORMATION
  Report Type: Spontaneous
  Country: US (occurrence: US)
  Receive Date: 20130626
  Receipt Date: 20130626
  Transmission Date: 20140414
  Serious: Yes (Death, Other)
  Sender: FDA-Public Use
  Company Number: US-JNJFOC-20130610390

PATIENT
  Sex: 0

DRUGS (13)
  1. DOXORUBICIN [Suspect]
     Indication: ACUTE LYMPHOCYTIC LEUKAEMIA
     Dosage: 4 WEEK INDUCTION PHASE
     Route: 042
  2. DOXORUBICIN [Suspect]
     Indication: ACUTE LYMPHOCYTIC LEUKAEMIA
     Dosage: CNS INTENSIFICATION PHASE
     Route: 042
  3. DOXORUBICIN [Suspect]
     Indication: ACUTE LYMPHOCYTIC LEUKAEMIA
     Dosage: 30-WEEK INTENSIFICATION PHASE
     Route: 042
  4. VINCRISTINE [Suspect]
     Indication: ACUTE LYMPHOCYTIC LEUKAEMIA
     Dosage: INDUCTION PHASE
     Route: 065
  5. PREDNISONE [Suspect]
     Indication: ACUTE LYMPHOCYTIC LEUKAEMIA
     Dosage: INDUCTION PHASE
     Route: 065
  6. METHOTREXATE [Suspect]
     Indication: ACUTE LYMPHOCYTIC LEUKAEMIA
     Dosage: INDUCTION PHASE
     Route: 065
  7. METHOTREXATE [Suspect]
     Indication: ACUTE LYMPHOCYTIC LEUKAEMIA
     Dosage: CONTINUATION PHASE
     Route: 065
  8. L-ASPARAGINASE [Suspect]
     Indication: ACUTE LYMPHOCYTIC LEUKAEMIA
     Dosage: INDUCTION PHASE
     Route: 065
  9. DEXRAZOXANE [Suspect]
     Indication: CARDIOVASCULAR EVENT PROPHYLAXIS
     Route: 042
  10. MERCAPTOPURINE [Suspect]
     Indication: ACUTE LYMPHOCYTIC LEUKAEMIA
     Dosage: PHASE 4
     Route: 065
  11. MERCAPTOPURINE-6 [Suspect]
     Indication: ACUTE LYMPHOCYTIC LEUKAEMIA
     Dosage: CNS INTENSIFICATION PHASE
     Route: 065
  12. DEXAMETHASONE [Suspect]
     Indication: ACUTE LYMPHOCYTIC LEUKAEMIA
     Dosage: PHASE 3: 5 DAY PULSES
     Route: 065
  13. DEXAMETHASONE [Suspect]
     Indication: ACUTE LYMPHOCYTIC LEUKAEMIA
     Dosage: CONTINUATION PHASE
     Route: 065

REACTIONS (4)
  - Death [Fatal]
  - Condition aggravated [Unknown]
  - Metastasis [Unknown]
  - Treatment failure [Unknown]
